FAERS Safety Report 4912881-3 (Version None)
Quarter: 2006Q1

REPORT INFORMATION
  Report Type: 
  Country: None (occurrence: None)
  Receive Date: 20060215
  Receipt Date: 20031125
  Transmission Date: 20060701
  Serious: Yes (Hospitalization)
  Sender: FDA-Public Use
  Company Number: FR-BRISTOL-MYERS SQUIBB COMPANY-12445987

PATIENT
  Age: 36 Year
  Sex: Female

DRUGS (3)
  1. ZERIT [Suspect]
     Indication: HIV INFECTION
     Dosage: DOSAGE FORM - TABLETS
     Route: 048
     Dates: start: 19980227, end: 20030429
  2. VIDEX [Suspect]
     Indication: HIV INFECTION
     Route: 048
     Dates: start: 19980227, end: 20030429
  3. VIRAMUNE [Suspect]
     Dosage: DOSAGE FORM - TABLETS
     Route: 048
     Dates: start: 19980227, end: 20030429

REACTIONS (3)
  - HEPATIC CIRRHOSIS [None]
  - PORTAL HYPERTENSION [None]
  - VARICES OESOPHAGEAL [None]
